FAERS Safety Report 7950135-1 (Version None)
Quarter: 2011Q4

REPORT INFORMATION
  Report Type: 
  Country: None (occurrence: None)
  Receive Date: 20111130
  Receipt Date: 20111117
  Transmission Date: 20120403
  Serious: Yes (Hospitalization)
  Sender: FDA-Public Use
  Company Number: JP-EISAI INC-E7389-01750-CLI-JP

PATIENT
  Sex: Female
  Weight: 41 kg

DRUGS (10)
  1. HERCEPTIN [Concomitant]
     Indication: BREAST CANCER RECURRENT
     Route: 065
  2. MAGMITT [Concomitant]
     Indication: PROPHYLAXIS
     Route: 048
  3. HALAVEN [Suspect]
     Indication: METASTASES TO LYMPH NODES
  4. DECADRON [Concomitant]
     Indication: PROPHYLAXIS
     Route: 048
  5. FLURBIPROFEN [Concomitant]
     Route: 041
  6. PENTAZOCINE LACTATE [Concomitant]
     Route: 041
  7. HERCEPTIN [Concomitant]
     Indication: METASTASES TO LYMPH NODES
  8. ISODINE GARGLE [Concomitant]
     Indication: PROPHYLAXIS
     Route: 065
  9. ALFAROL [Concomitant]
     Route: 048
  10. HALAVEN [Suspect]
     Indication: BREAST CANCER RECURRENT
     Route: 041
     Dates: start: 20110826

REACTIONS (2)
  - PNEUMONIA ASPIRATION [None]
  - PNEUMONIA [None]
